FAERS Safety Report 24109532 (Version 2)
Quarter: 2024Q3

REPORT INFORMATION
  Report Type: Spontaneous
  Country: US (occurrence: US)
  Receive Date: 20240718
  Receipt Date: 20240918
  Transmission Date: 20241016
  Serious: Yes (Other)
  Sender: TAKEDA
  Company Number: US-TAKEDA-2024TUS072491

PATIENT
  Sex: Male

DRUGS (3)
  1. HYQVIA [Suspect]
     Active Substance: HUMAN IMMUNOGLOBULIN G\HYALURONIDASE (HUMAN RECOMBINANT)
     Indication: Primary immunodeficiency syndrome
     Dosage: UNK
     Route: 058
  2. HYQVIA [Suspect]
     Active Substance: HUMAN IMMUNOGLOBULIN G\HYALURONIDASE (HUMAN RECOMBINANT)
     Indication: Immunodeficiency
     Dosage: UNK, Q4WEEKS
     Route: 058
     Dates: start: 20240707, end: 20240707
  3. XOLAIR [Concomitant]
     Active Substance: OMALIZUMAB
     Indication: Asthma
     Dosage: UNK
     Route: 058
     Dates: start: 20220117

REACTIONS (3)
  - Peripheral swelling [Recovered/Resolved]
  - Limb discomfort [Recovered/Resolved]
  - Nausea [Recovered/Resolved]
